FAERS Safety Report 8174171-8 (Version None)
Quarter: 2012Q1

REPORT INFORMATION
  Report Type: 
  Country: None (occurrence: None)
  Receive Date: 20120229
  Receipt Date: 20120213
  Transmission Date: 20120608
  Serious: Yes (Hospitalization)
  Sender: FDA-Public Use
  Company Number: US-ROCHE-1027991

PATIENT
  Sex: Male
  Weight: 68.2 kg

DRUGS (1)
  1. VEMURAFENIB [Suspect]
     Indication: MALIGNANT MELANOMA
     Dosage: MOST RECENT DOSE PRIOR TO SAE: 11 MAY 2011
     Route: 048
     Dates: start: 20110511

REACTIONS (3)
  - PUPILS UNEQUAL [None]
  - FATIGUE [None]
  - PYREXIA [None]
